FAERS Safety Report 5038835-7 (Version None)
Quarter: 2006Q2

REPORT INFORMATION
  Report Type: 
  Country: None (occurrence: None)
  Receive Date: 20060629
  Receipt Date: 20060621
  Transmission Date: 20061013
  Serious: Yes (Other)
  Sender: FDA-Public Use
  Company Number: 2006AC01182

PATIENT
  Age: 83 Year
  Sex: Female

DRUGS (7)
  1. ESOMEPRAZOLE [Suspect]
     Indication: DYSPEPSIA
     Dosage: TAKEN FOR 16 WEEKS AT TIME OF DIAGNOSIS.
  2. AMITRIPTYLINE HCL [Concomitant]
  3. CALCIUM GLUCONATE [Concomitant]
  4. CLOPIDOGREL [Concomitant]
  5. DIGOXIN [Concomitant]
  6. DISODIUM ETIDRONATE [Concomitant]
  7. IRON [Concomitant]

REACTIONS (7)
  - ANAEMIA [None]
  - BALANCE DISORDER [None]
  - HYPERSENSITIVITY [None]
  - IMMUNE SYSTEM DISORDER [None]
  - LEUKOCYTOSIS [None]
  - NEPHRITIS INTERSTITIAL [None]
  - RENAL FAILURE ACUTE [None]
